FAERS Safety Report 23637622 (Version 1)
Quarter: 2024Q1

REPORT INFORMATION
  Report Type: Spontaneous
  Country: US (occurrence: None)
  Receive Date: 20240315
  Receipt Date: 20240315
  Transmission Date: 20240410
  Serious: Yes (Other)
  Sender: FDA-Public Use
  Company Number: None

PATIENT
  Age: 68 Year
  Sex: Male

DRUGS (1)
  1. TRULICITY [Suspect]
     Active Substance: DULAGLUTIDE
     Dosage: OTHER FREQUENCY : ONCE A WEEK;?
     Route: 030

REACTIONS (5)
  - Diarrhoea [None]
  - Photophobia [None]
  - Rash [None]
  - Pyrexia [None]
  - Blood glucose increased [None]

NARRATIVE: CASE EVENT DATE: 20240314
